FAERS Safety Report 4735709-3 (Version None)
Quarter: 2005Q3

REPORT INFORMATION
  Report Type: 
  Country: None (occurrence: None)
  Receive Date: 20050805
  Receipt Date: 20050728
  Transmission Date: 20060218
  Serious: Yes (Death, Other)
  Sender: FDA-Public Use
  Company Number: FR-BRISTOL-MYERS SQUIBB COMPANY-13057120

PATIENT
  Age: 83 Year
  Sex: Female

DRUGS (4)
  1. QUESTRAN [Suspect]
     Indication: DIARRHOEA
     Route: 048
  2. IMODIUM [Concomitant]
  3. ERCEFURYL [Concomitant]
  4. ALCAPHOR [Concomitant]

REACTIONS (1)
  - PANCREATIC CARCINOMA METASTATIC [None]
